FAERS Safety Report 10734168 (Version 1)
Quarter: 2015Q1

REPORT INFORMATION
  Report Type: Spontaneous
  Country: NO (occurrence: NO)
  Receive Date: 20150123
  Receipt Date: 20150123
  Transmission Date: 20150721
  Serious: Yes (Disabling, Other)
  Sender: FDA-Public Use
  Company Number: NO-PFIZER INC-2015018749

PATIENT
  Age: 66 Year
  Sex: Female

DRUGS (3)
  1. LIPITOR [Suspect]
     Active Substance: ATORVASTATIN CALCIUM
     Indication: HYPERCHOLESTEROLAEMIA
     Dosage: 20 MG, 1X/DAY
     Dates: start: 20100301, end: 20100428
  2. FEXOFENADINE [Concomitant]
     Active Substance: FEXOFENADINE\FEXOFENADINE HYDROCHLORIDE
     Dosage: 120 MG, 1X/DAY
  3. SIMVASTATIN. [Suspect]
     Active Substance: SIMVASTATIN
     Indication: HYPERCHOLESTEROLAEMIA
     Dosage: 40 MG, 1X/DAY
     Dates: start: 20100211, end: 20100301

REACTIONS (7)
  - Photosensitivity reaction [Unknown]
  - Ophthalmic herpes zoster [Recovered/Resolved]
  - Malaise [Unknown]
  - Dyspnoea [Unknown]
  - Herpes zoster [Recovered/Resolved]
  - Ulcerative keratitis [Unknown]
  - Rosacea [Recovering/Resolving]

NARRATIVE: CASE EVENT DATE: 20100301
